FAERS Safety Report 24203914 (Version 2)
Quarter: 2024Q3

REPORT INFORMATION
  Report Type: Report from Study
  Country: US (occurrence: US)
  Receive Date: 20240813
  Receipt Date: 20240903
  Transmission Date: 20241017
  Serious: Yes (Hospitalization)
  Sender: CHIESI
  Company Number: US-CHIESI-2024CHF04869

PATIENT
  Age: 34 Year
  Sex: Female

DRUGS (1)
  1. ELFABRIO [Suspect]
     Active Substance: PEGUNIGALSIDASE ALFA-IWXJ
     Indication: Fabry^s disease
     Dosage: UNK

REACTIONS (19)
  - Ill-defined disorder [Unknown]
  - Social avoidant behaviour [Unknown]
  - Sleep disorder [Unknown]
  - Brain fog [Unknown]
  - Depression [Unknown]
  - Hyperhidrosis [Unknown]
  - Anxiety [Unknown]
  - Constipation [Unknown]
  - Abdominal pain upper [Unknown]
  - Paraesthesia [Unknown]
  - Hypohidrosis [Unknown]
  - Pain in extremity [Unknown]
  - Abdominal pain [Unknown]
  - Pain [Unknown]
  - Pain [Unknown]
  - Nausea [Unknown]
  - Vomiting [Unknown]
  - Asthenia [Unknown]
  - Fatigue [Unknown]

NARRATIVE: CASE EVENT DATE: 20230101
